FAERS Safety Report 5128236-5 (Version None)
Quarter: 2006Q4

REPORT INFORMATION
  Report Type: 
  Country: None (occurrence: None)
  Receive Date: 20061011
  Receipt Date: 20060927
  Transmission Date: 20070319
  Serious: Yes (Other)
  Sender: FDA-Public Use
  Company Number: CHNY2006BR02713

PATIENT
  Sex: Female

DRUGS (1)
  1. CIBALENAA (NCH) (CAFFEINE CITRATE, [Suspect]
     Indication: HEADACHE
     Dosage: 1 OR 2 TABLETS, ORAL
     Route: 048

REACTIONS (3)
  - ABORTION SPONTANEOUS [None]
  - DRUG EXPOSURE DURING PREGNANCY [None]
  - PAIN [None]
